FAERS Safety Report 7365274-6 (Version None)
Quarter: 2011Q1

REPORT INFORMATION
  Report Type: 
  Country: None (occurrence: None)
  Receive Date: 20110322
  Receipt Date: 20110311
  Transmission Date: 20110831
  Serious: Yes (Hospitalization)
  Sender: FDA-Public Use
  Company Number: US-BIOGENIDEC-2011BI008625

PATIENT
  Age: 46 Year
  Sex: Female
  Weight: 108 kg

DRUGS (2)
  1. AVONEX [Suspect]
     Indication: MULTIPLE SCLEROSIS
     Route: 030
     Dates: start: 20100917
  2. COPAXONE [Concomitant]
     Indication: MULTIPLE SCLEROSIS
     Dates: start: 20090101

REACTIONS (6)
  - INJECTION SITE PAIN [None]
  - FALL [None]
  - LOWER LIMB FRACTURE [None]
  - ANKLE FRACTURE [None]
  - INJECTION SITE HAEMATOMA [None]
  - INJECTION SITE RASH [None]
